FAERS Safety Report 10591286 (Version 1)
Quarter: 2014Q4

REPORT INFORMATION
  Report Type: Spontaneous
  Country: IT (occurrence: IT)
  Receive Date: 20141118
  Receipt Date: 20141118
  Transmission Date: 20150529
  Serious: Yes (Hospitalization)
  Sender: FDA-Public Use
  Company Number: IT-ELI_LILLY_AND_COMPANY-IT201411003543

PATIENT
  Age: 63 Year
  Sex: Male

DRUGS (7)
  1. HUMALOG [Suspect]
     Active Substance: INSULIN LISPRO
     Indication: TYPE 2 DIABETES MELLITUS
     Dosage: 4 U, QD
     Route: 058
     Dates: start: 20140101, end: 20141030
  2. CARDIOASPIRIN [Concomitant]
     Active Substance: ASPIRIN
     Dosage: 1 DF, UNKNOWN
     Route: 048
     Dates: start: 2011
  3. KARVEA [Concomitant]
     Active Substance: IRBESARTAN
     Indication: HYPERTENSION
     Dosage: 300 MG, UNKNOWN
     Route: 048
     Dates: start: 2011
  4. HUMALOG [Suspect]
     Active Substance: INSULIN LISPRO
     Dosage: UNK UNK, UNKNOWN
     Route: 058
     Dates: start: 20141030
  5. LANTUS [Suspect]
     Active Substance: INSULIN GLARGINE
     Indication: TYPE 2 DIABETES MELLITUS
     Dosage: 9 U, QD
     Route: 058
     Dates: start: 20140101, end: 20141030
  6. LANTUS [Suspect]
     Active Substance: INSULIN GLARGINE
     Dosage: UNK UNK, UNKNOWN
     Route: 058
     Dates: start: 20141030
  7. LYRICA [Concomitant]
     Active Substance: PREGABALIN
     Dosage: 2 DF, UNKNOWN
     Route: 048
     Dates: start: 2013

REACTIONS (3)
  - Head injury [Recovered/Resolved]
  - Hypoglycaemic coma [Recovered/Resolved]
  - Fall [Recovered/Resolved]

NARRATIVE: CASE EVENT DATE: 20141030
